FAERS Safety Report 12931981 (Version 1)
Quarter: 2016Q4

REPORT INFORMATION
  Report Type: Spontaneous
  Country: NL (occurrence: NL)
  Receive Date: 20161111
  Receipt Date: 20161111
  Transmission Date: 20170207
  Serious: Yes (Hospitalization, Other)
  Sender: FDA-Public Use
  Company Number: NL-APOTEX-2016AP014440

PATIENT
  Age: 49 Year
  Sex: Female

DRUGS (2)
  1. TAMOXIFEN APOTEX TABLETTEN [Suspect]
     Active Substance: TAMOXIFEN
     Indication: INVASIVE DUCTAL BREAST CARCINOMA
     Route: 065
  2. TRASTUZUMAB [Concomitant]
     Active Substance: TRASTUZUMAB
     Indication: CHEMOTHERAPY
     Route: 065

REACTIONS (7)
  - Endometrial hyperplasia [Unknown]
  - Uterine polyp [Unknown]
  - Endometrial cancer [Unknown]
  - Uterine haemorrhage [Unknown]
  - Metastases to central nervous system [Unknown]
  - Breast cancer metastatic [Unknown]
  - Condition aggravated [Recovered/Resolved]
